FAERS Safety Report 9010979 (Version 1)
Quarter: 2013Q1

REPORT INFORMATION
  Report Type: Spontaneous
  Country: US (occurrence: US)
  Receive Date: 20130109
  Receipt Date: 20130109
  Transmission Date: 20140127
  Serious: Yes (Other)
  Sender: FDA-Public Use
  Company Number: US-BAYER-2013-001431

PATIENT
  Age: 49 Year
  Sex: Male

DRUGS (2)
  1. GADAVIST [Suspect]
     Indication: NUCLEAR MAGNETIC RESONANCE IMAGING BRAIN
     Dosage: 10 ML, ONCE
     Dates: start: 20130103, end: 20130103
  2. GADAVIST [Suspect]
     Indication: BLINDNESS UNILATERAL

REACTIONS (3)
  - Urticaria [None]
  - Pruritus [Recovering/Resolving]
  - Oropharyngeal discomfort [Recovering/Resolving]
